FAERS Safety Report 4438979-4 (Version None)
Quarter: 2004Q3

REPORT INFORMATION
  Report Type: 
  Country: None (occurrence: None)
  Receive Date: 20040830
  Receipt Date: 20040817
  Transmission Date: 20050211
  Serious: Yes (Hospitalization, Other)
  Sender: FDA-Public Use
  Company Number: 2004021594

PATIENT
  Age: 68 Year
  Sex: Male
  Weight: 68 kg

DRUGS (4)
  1. NORVASC [Suspect]
     Indication: HYPERTENSION
     Dosage: 5 MG (5 MG, 1 IN 1 D), ORAL
     Route: 048
     Dates: end: 20040323
  2. LOXOPROFEN SODIUM (LOXOPROFEN SODIUM) [Concomitant]
  3. DOMPERIDONE (DOMPERIDONE) [Concomitant]
  4. EPRAZINONE HYDROCHLORIDE (EPRAZINONE HYDROCHLORIDE) [Concomitant]

REACTIONS (4)
  - CHOLESTASIS [None]
  - HEPATIC NECROSIS [None]
  - HEPATITIS CHRONIC ACTIVE [None]
  - HEPATITIS NON-A NON-B NON-C [None]
